FAERS Safety Report 19039774 (Version 1)
Quarter: 2021Q1

REPORT INFORMATION
  Report Type: Spontaneous
  Country: NL (occurrence: NL)
  Receive Date: 20210322
  Receipt Date: 20210322
  Transmission Date: 20210420
  Serious: Yes (Hospitalization, Other)
  Sender: FDA-Public Use
  Company Number: NL-PFIZER INC-2021262622

PATIENT
  Age: 82 Year
  Sex: Male

DRUGS (2)
  1. ZOLEDRONIC ACID [Suspect]
     Active Substance: ZOLEDRONIC ACID
     Indication: METASTASES TO BONE
     Dosage: UNK UNK, MONTHLY
  2. GOSERELIN [Concomitant]
     Active Substance: GOSERELIN
     Indication: METASTASES TO BONE
     Dosage: UNK

REACTIONS (3)
  - Nephropathy toxic [Recovered/Resolved]
  - Renal tubular injury [Recovered/Resolved]
  - Nephropathy [Recovered/Resolved]
